FAERS Safety Report 8922124 (Version 1)
Quarter: 2012Q4

REPORT INFORMATION
  Report Type: Spontaneous
  Country: US (occurrence: None)
  Receive Date: 20121120
  Receipt Date: 20121120
  Transmission Date: 20130627
  Serious: Yes (Hospitalization)
  Sender: FDA-Public Use
  Company Number: None

PATIENT
  Age: 84 Year
  Sex: Male
  Weight: 85.9 kg

DRUGS (1)
  1. ZYTIGA [Suspect]
     Indication: PROSTATE CANCER
     Dosage: Zytiga 250mg daily po
     Route: 048
     Dates: start: 20120222

REACTIONS (4)
  - Anaemia [None]
  - Fall [None]
  - Haematochezia [None]
  - Prostatic specific antigen increased [None]
